FAERS Safety Report 7071573-8 (Version None)
Quarter: 2010Q4

REPORT INFORMATION
  Report Type: 
  Country: None (occurrence: None)
  Receive Date: 20101029
  Receipt Date: 20101021
  Transmission Date: 20110411
  Serious: Yes (Other)
  Sender: FDA-Public Use
  Company Number: US-SANOFI-AVENTIS-2010SA061298

PATIENT
  Age: 60 Year
  Sex: Female

DRUGS (5)
  1. MULTAQ [Suspect]
     Indication: ATRIAL FIBRILLATION
     Route: 048
     Dates: start: 20101003
  2. METOPROLOL [Concomitant]
     Indication: HEART RATE
     Dates: end: 20101001
  3. METOPROLOL [Concomitant]
     Dates: start: 20101001
  4. ASPIRIN [Concomitant]
     Dosage: TAKES QOD OR WHEN REMEMBERS
  5. VITAMINS [Concomitant]
     Dosage: TAKES OCCASSIONALLY

REACTIONS (4)
  - ATRIAL FIBRILLATION [None]
  - HEART RATE INCREASED [None]
  - INSOMNIA [None]
  - PALPITATIONS [None]
